FAERS Safety Report 26143649 (Version 1)
Quarter: 2025Q4

REPORT INFORMATION
  Report Type: Spontaneous
  Country: US (occurrence: US)
  Receive Date: 20251211
  Receipt Date: 20251211
  Transmission Date: 20260118
  Serious: Yes (Other)
  Sender: RADIUS PHARM
  Company Number: US-RADIUS HEALTH INC.-US-RADIUS-25056844

PATIENT
  Sex: Female

DRUGS (1)
  1. TYMLOS [Suspect]
     Active Substance: ABALOPARATIDE
     Indication: Senile osteoporosis
     Dosage: 80 MICROGRAM, QD
     Route: 058

REACTIONS (8)
  - Tinnitus [Unknown]
  - Irritability [Unknown]
  - Alopecia [Unknown]
  - Headache [Unknown]
  - Heart rate increased [Unknown]
  - Fatigue [Unknown]
  - Malaise [Unknown]
  - Insomnia [Unknown]
